FAERS Safety Report 7750191-X (Version None)
Quarter: 2011Q3

REPORT INFORMATION
  Report Type: 
  Country: None (occurrence: None)
  Receive Date: 20110914
  Receipt Date: 20110914
  Transmission Date: 20111222
  Serious: Yes (Other)
  Sender: FDA-Public Use
  Company Number: None

PATIENT
  Age: 59 Year
  Sex: Male
  Weight: 89.811 kg

DRUGS (1)
  1. SULFATRIM-DS [Suspect]
     Indication: BURSITIS
     Dosage: 2
     Route: 048

REACTIONS (6)
  - COGNITIVE DISORDER [None]
  - VISUAL IMPAIRMENT [None]
  - LETHARGY [None]
  - ROAD TRAFFIC ACCIDENT [None]
  - JUDGEMENT IMPAIRED [None]
  - APATHY [None]
